FAERS Safety Report 8153797-1 (Version None)
Quarter: 2012Q1

REPORT INFORMATION
  Report Type: 
  Country: None (occurrence: None)
  Receive Date: 20120221
  Receipt Date: 20120213
  Transmission Date: 20120608
  Serious: Yes (Other)
  Sender: FDA-Public Use
  Company Number: JP-GLAXOSMITHKLINE-B0782208A

PATIENT
  Age: 15 Year
  Sex: Male

DRUGS (3)
  1. DEXTROMETHORPHAN HYDROBROMIDE [Concomitant]
     Route: 048
     Dates: start: 20120210
  2. RELENZA [Suspect]
     Indication: INFLUENZA
     Dosage: 10MG PER DAY
     Route: 055
     Dates: start: 20120210
  3. ACETAMINOPHEN [Concomitant]
     Route: 048
     Dates: start: 20120210

REACTIONS (8)
  - FEELING ABNORMAL [None]
  - NASAL CONGESTION [None]
  - NIGHTMARE [None]
  - ABNORMAL BEHAVIOUR [None]
  - CONTUSION [None]
  - JOINT SWELLING [None]
  - DECREASED ACTIVITY [None]
  - DECREASED APPETITE [None]
